FAERS Safety Report 11193273 (Version 1)
Quarter: 2015Q2

REPORT INFORMATION
  Report Type: Spontaneous
  Country: PT (occurrence: PT)
  Receive Date: 20150616
  Receipt Date: 20150616
  Transmission Date: 20150821
  Serious: Yes (Death, Hospitalization, Other)
  Sender: FDA-Public Use
  Company Number: PT-CELGENE-PRT-2015062414

PATIENT

DRUGS (1)
  1. AZACITIDINE INJECTABLE [Suspect]
     Active Substance: AZACITIDINE
     Indication: MYELODYSPLASTIC SYNDROME
     Route: 065
     Dates: start: 20060731, end: 20140324

REACTIONS (7)
  - Pyrexia [Fatal]
  - Infection [Unknown]
  - Skin infection [Unknown]
  - Pneumonia [Fatal]
  - Neutropenia [Unknown]
  - Acute myeloid leukaemia [Unknown]
  - Lung infection [Unknown]
